FAERS Safety Report 4292605-6 (Version None)
Quarter: 2004Q1

REPORT INFORMATION
  Report Type: 
  Country: None (occurrence: None)
  Receive Date: 20040126
  Receipt Date: 20031020
  Transmission Date: 20041129
  Serious: No
  Sender: FDA-Public Use
  Company Number: USA031050411

PATIENT
  Age: 83 Year
  Sex: Female
  Weight: 64 kg

DRUGS (13)
  1. FORTEO [Suspect]
     Indication: OSTEOPOROSIS
     Dates: start: 20031016
  2. DILTIAZEM [Concomitant]
  3. ALBUTEROL [Concomitant]
  4. FLOVENT [Concomitant]
  5. COMBIVENT [Concomitant]
  6. CELEBREX [Concomitant]
  7. METHOTREXATE [Concomitant]
  8. FOLIC ACID [Concomitant]
  9. PREDNISONE [Concomitant]
  10. HYDROCHLOROTHIAZIDE [Concomitant]
  11. ASPIRIN [Concomitant]
  12. CALCIUM [Concomitant]
  13. MULTIVITAMIN [Concomitant]

REACTIONS (5)
  - DIZZINESS [None]
  - DYSPEPSIA [None]
  - FATIGUE [None]
  - NAUSEA [None]
  - PAIN IN EXTREMITY [None]
